FAERS Safety Report 7999370-7 (Version None)
Quarter: 2011Q4

REPORT INFORMATION
  Report Type: 
  Country: None (occurrence: None)
  Receive Date: 20111221
  Receipt Date: 20101007
  Transmission Date: 20120403
  Serious: Yes (Hospitalization)
  Sender: FDA-Public Use
  Company Number: PHHY2010NL66966

PATIENT
  Age: 61 Year
  Sex: Male

DRUGS (4)
  1. TOBI [Suspect]
     Dosage: UNK
  2. ALBUTEROL SULFATE AUTOHALER [Concomitant]
  3. AMPHOTERICIN B [Concomitant]
  4. ACETAMINOPHEN [Concomitant]

REACTIONS (1)
  - WHITE BLOOD CELL COUNT DECREASED [None]
